FAERS Safety Report 5891672-3 (Version None)
Quarter: 2008Q3

REPORT INFORMATION
  Report Type: 
  Country: None (occurrence: None)
  Receive Date: 20080922
  Receipt Date: 20080918
  Transmission Date: 20090109
  Serious: Yes (Hospitalization)
  Sender: FDA-Public Use
  Company Number: US-BRISTOL-MYERS SQUIBB COMPANY-14339790

PATIENT
  Age: 53 Year
  Sex: Male
  Weight: 88 kg

DRUGS (5)
  1. ABILIFY [Suspect]
     Indication: DEPRESSION
     Dosage: INNITIATED 2 AND HALF WEEEKS AGO
  2. ASPIRIN [Suspect]
     Dosage: DISCONTINUED AFTER 1ST HOSPITALIZATION.
  3. LISINOPRIL [Concomitant]
     Dosage: TAKING FOR LONG TIME.
  4. PROZAC [Concomitant]
     Dosage: TAKING FOR LONG TIME.
  5. HYDROCHLOROTHIAZIDE [Concomitant]
     Dosage: TAKING FOR LONG TIME.

REACTIONS (2)
  - ARTERIAL RUPTURE [None]
  - HAEMORRHAGE INTRACRANIAL [None]
